FAERS Safety Report 18195438 (Version 3)
Quarter: 2021Q1

REPORT INFORMATION
  Report Type: Report from Study
  Country: None (occurrence: CA)
  Receive Date: 20200826
  Receipt Date: 20210326
  Transmission Date: 20210419
  Serious: Yes (Other)
  Sender: FDA-Public Use
  Company Number: CA-ABBVIE-20K-028-3538883-00

PATIENT
  Age: 37 Year
  Sex: Male

DRUGS (1)
  1. SKYRIZI [Suspect]
     Active Substance: RISANKIZUMAB-RZAA
     Indication: PSORIASIS
     Route: 058
     Dates: start: 20190531, end: 20200529

REACTIONS (9)
  - Syncope [Recovered/Resolved]
  - Loss of consciousness [Unknown]
  - Hyperhidrosis [Unknown]
  - Asthenia [Unknown]
  - Tremor [Unknown]
  - Vertigo [Unknown]
  - Memory impairment [Unknown]
  - Dizziness [Unknown]
  - Nausea [Unknown]

NARRATIVE: CASE EVENT DATE: 2020
